FAERS Safety Report 13105372 (Version 1)
Quarter: 2017Q1

REPORT INFORMATION
  Report Type: Spontaneous
  Country: US (occurrence: US)
  Receive Date: 20170111
  Receipt Date: 20170111
  Transmission Date: 20170428
  Serious: Yes (Hospitalization)
  Sender: FDA-Public Use
  Company Number: US-WEST-WARD PHARMACEUTICALS CORP.-US-H14001-16-03201

PATIENT
  Age: 44 Year
  Sex: Male

DRUGS (2)
  1. CALCITRIOL. [Suspect]
     Active Substance: CALCITRIOL
     Indication: HYPOPHOSPHATAEMIC RICKETS
     Route: 065
  2. PHOSPHORUS REPLACEMENT [Suspect]
     Active Substance: PHOSPHORUS
     Indication: HYPOPHOSPHATAEMIC RICKETS
     Route: 065

REACTIONS (5)
  - Blood creatinine increased [None]
  - Acute kidney injury [None]
  - Hyperphosphataemia [None]
  - Hyperparathyroidism tertiary [Unknown]
  - Haemodialysis [None]
